FAERS Safety Report 19061447 (Version 1)
Quarter: 2021Q1

REPORT INFORMATION
  Report Type: Report from Study
  Country: US (occurrence: US)
  Receive Date: 20210325
  Receipt Date: 20210325
  Transmission Date: 20210420
  Serious: Yes (Hospitalization)
  Sender: FDA-Public Use
  Company Number: US-GILEAD-2019-0422443

PATIENT
  Age: 68 Year
  Sex: Male

DRUGS (51)
  1. LEVETIRACETAM. [Concomitant]
     Active Substance: LEVETIRACETAM
     Dosage: 750,MG,TWICE DAILY
     Route: 048
     Dates: start: 20181225, end: 20190125
  2. CIPROFLOXACIN. [Concomitant]
     Active Substance: CIPROFLOXACIN
     Dosage: 500,MG,TWICE DAILY
     Route: 048
     Dates: start: 20181226, end: 20181226
  3. DEXTROMETHORPHAN [Concomitant]
     Active Substance: DEXTROMETHORPHAN
     Dosage: 60,MG,ONCE
     Route: 048
     Dates: start: 20190103, end: 20190103
  4. CYCLOPHOSPHAMIDE. [Suspect]
     Active Substance: CYCLOPHOSPHAMIDE
     Indication: BONE MARROW CONDITIONING REGIMEN
     Dosage: 500 MG/M2
     Route: 042
     Dates: start: 20181221, end: 20181223
  5. LEVETIRACETAM. [Concomitant]
     Active Substance: LEVETIRACETAM
     Dosage: 750,MG,TWICE DAILY
     Route: 048
     Dates: start: 20181225
  6. PENTAMIDINE [Concomitant]
     Active Substance: PENTAMIDINE
     Dosage: 300,MG,ONCE
     Route: 055
     Dates: start: 20190131, end: 20190131
  7. CEFAZOLIN [Concomitant]
     Active Substance: CEFAZOLIN
     Dosage: 2,G,ONCE
     Route: 042
     Dates: start: 20181220, end: 20181220
  8. PALONOSETRON. [Concomitant]
     Active Substance: PALONOSETRON HYDROCHLORIDE
     Dosage: 0.25,MG,ONCE
     Route: 042
     Dates: start: 20181221, end: 20181221
  9. LACTULOSE. [Concomitant]
     Active Substance: LACTULOSE
     Dosage: 15,ML,ONCE
     Route: 048
     Dates: start: 20181223, end: 20181223
  10. MAGNESIUM AMINO ACID CHELATE [Concomitant]
     Active Substance: MAGNESIUM
     Dosage: 266,MG,ONCE
     Route: 048
     Dates: start: 20181224, end: 20181224
  11. AXICABTAGENE CILOLEUCEL [Suspect]
     Active Substance: AXICABTAGENE CILOLEUCEL
     Indication: DIFFUSE LARGE B-CELL LYMPHOMA
     Dosage: 68
     Route: 042
     Dates: start: 20181226, end: 20181226
  12. ACYCLOVIR [ACICLOVIR] [Concomitant]
     Active Substance: ACYCLOVIR
     Dosage: 800,MG,TWICE DAILY
     Route: 048
     Dates: start: 20181226
  13. ALLOPURINOL. [Concomitant]
     Active Substance: ALLOPURINOL
     Dosage: 300,MG,DAILY
     Route: 048
     Dates: start: 20181226, end: 20190105
  14. PANTOPRAZOLE [Concomitant]
     Active Substance: PANTOPRAZOLE
     Dosage: 40,MG,DAILY
     Route: 048
     Dates: start: 20181128
  15. CIPROFLOXACIN. [Concomitant]
     Active Substance: CIPROFLOXACIN
     Dosage: 500,MG,ONCE
     Route: 048
     Dates: start: 20181227, end: 20181227
  16. PENTAMIDINE [Concomitant]
     Active Substance: PENTAMIDINE
     Dosage: 300,MG,ONCE
     Route: 055
     Dates: start: 20190329, end: 20190329
  17. PENTAMIDINE [Concomitant]
     Active Substance: PENTAMIDINE
     Dosage: 300,MG,ONCE
     Route: 055
     Dates: start: 20190719, end: 20190719
  18. RED BLOOD CELLS [Concomitant]
     Active Substance: HUMAN RED BLOOD CELL
     Dosage: UN,ML,ONCE
     Route: 042
     Dates: start: 20190103, end: 20190103
  19. TRAMADOL. [Concomitant]
     Active Substance: TRAMADOL
     Dosage: 50,MG,AS NECESSARY
     Route: 048
     Dates: start: 20181229, end: 20181230
  20. FLUDARABINE [Suspect]
     Active Substance: FLUDARABINE PHOSPHATE
     Indication: BONE MARROW CONDITIONING REGIMEN
     Dosage: 30 MG/M2
     Route: 042
     Dates: start: 20181221, end: 20181223
  21. LORATADINE. [Concomitant]
     Active Substance: LORATADINE
     Dosage: 10,MG,DAILY
     Route: 048
     Dates: start: 20181121
  22. PENTAMIDINE [Concomitant]
     Active Substance: PENTAMIDINE
     Dosage: 300,MG,ONCE
     Route: 055
     Dates: start: 20190621, end: 20190621
  23. TIOTROPIUM [Concomitant]
     Active Substance: TIOTROPIUM
     Dosage: 5,UG,DAILY
     Route: 055
     Dates: start: 20190104
  24. HUMALOG [Concomitant]
     Active Substance: INSULIN LISPRO
     Dosage: 10,OTHER,AS NECESSARY
     Route: 058
     Dates: start: 20191122
  25. FLUTICASONE;SALMETEROL [Concomitant]
     Active Substance: FLUTICASONE PROPIONATE\SALMETEROL XINAFOATE
     Dosage: 1,OTHER,TWICE DAILY
     Route: 055
     Dates: start: 20191128
  26. GUAIFENESIN AND DEXTROMETHORPHAN [Concomitant]
     Active Substance: DEXTROMETHORPHAN\GUAIFENESIN
     Dosage: 10,ML,AS NEEDED
     Route: 048
     Dates: start: 20191121
  27. PROCHLORPERAZINE. [Concomitant]
     Active Substance: PROCHLORPERAZINE
     Dosage: 10,MG,DAILY
     Route: 048
     Dates: start: 20181221, end: 20181223
  28. ACETAMINOPHEN. [Concomitant]
     Active Substance: ACETAMINOPHEN
     Dosage: 650,MG,DAILY
     Route: 048
     Dates: start: 20181226, end: 20181229
  29. ACETAMINOPHEN. [Concomitant]
     Active Substance: ACETAMINOPHEN
     Dosage: 650,MG,TWICE DAILY
     Route: 048
     Dates: start: 20181230, end: 20181231
  30. DIPHENHYDRAMINE. [Concomitant]
     Active Substance: DIPHENHYDRAMINE
     Dosage: 25,MG,ONCE
     Route: 042
     Dates: start: 20181226, end: 20181226
  31. LORATADINE. [Concomitant]
     Active Substance: LORATADINE
     Dosage: 10,MG,DAILY
     Route: 048
     Dates: start: 20181226
  32. PANTOPRAZOLE [Concomitant]
     Active Substance: PANTOPRAZOLE
     Dosage: 40,MG,DAILY
     Route: 048
     Dates: start: 20181227
  33. PENTAMIDINE [Concomitant]
     Active Substance: PENTAMIDINE
     Dosage: 300,MG,ONCE
     Route: 055
     Dates: start: 20190524, end: 20190524
  34. RED BLOOD CELLS [Concomitant]
     Active Substance: HUMAN RED BLOOD CELL
     Dosage: 305,ML,ONCE
     Route: 042
     Dates: start: 20190101, end: 20190101
  35. CIPROFLOXACIN. [Concomitant]
     Active Substance: CIPROFLOXACIN
     Dosage: 500,MG,TWICE DAILY
     Route: 048
     Dates: start: 20190104
  36. PENTAMIDINE [Concomitant]
     Active Substance: PENTAMIDINE
     Dosage: 300,MG,ONCE
     Route: 055
     Dates: start: 20190426, end: 20190426
  37. IPRATROPIUM [Concomitant]
     Active Substance: IPRATROPIUM
     Dosage: 2,OTHER,TWICE DAILY
     Route: 045
     Dates: start: 20190627
  38. CALCIUM GLUCONATE. [Concomitant]
     Active Substance: CALCIUM GLUCONATE
     Dosage: 5,G,ONCE
     Route: 042
     Dates: start: 20181203, end: 20181203
  39. OXYCODONE [Concomitant]
     Active Substance: OXYCODONE
     Dosage: 5,MG,TWICE DAILY
     Route: 048
     Dates: start: 20181227, end: 20181228
  40. FLUCONAZOLE. [Concomitant]
     Active Substance: FLUCONAZOLE
     Dosage: 400,MG,DAILY
     Route: 048
     Dates: start: 20181226
  41. ALLOPURINOL. [Concomitant]
     Active Substance: ALLOPURINOL
     Dosage: 300,MG,DAILY
     Route: 048
     Dates: start: 20181226
  42. PENTAMIDINE [Concomitant]
     Active Substance: PENTAMIDINE
     Dosage: 300,MG,ONCE
     Route: 055
     Dates: start: 20190821, end: 20190821
  43. PENTAMIDINE [Concomitant]
     Active Substance: PENTAMIDINE
     Dosage: 300,MG,ONCE
     Route: 055
     Dates: start: 20190226, end: 20190226
  44. MONTELUKAST [Concomitant]
     Active Substance: MONTELUKAST SODIUM
     Dosage: 10,MG,DAILY
     Route: 048
     Dates: start: 20191128
  45. MAGNESIUM AMINO ACID CHELATE [Concomitant]
     Active Substance: MAGNESIUM
     Dosage: 266,MG,ONCE
     Route: 048
     Dates: start: 20190108, end: 20190108
  46. TRAMADOL. [Concomitant]
     Active Substance: TRAMADOL
     Dosage: 75,MG,ONCE
     Route: 048
     Dates: start: 20190107, end: 20190107
  47. MODERNA COVID?19 VACCINE [Concomitant]
     Active Substance: CX-024414
     Dosage: 100 UG, ONCE
     Route: 030
     Dates: start: 20210217, end: 20210217
  48. PANTOPRAZOLE [Concomitant]
     Active Substance: PANTOPRAZOLE
     Dosage: 40,MG,DAILY
     Route: 048
     Dates: start: 20191130, end: 20191202
  49. CIPROFLOXACIN. [Concomitant]
     Active Substance: CIPROFLOXACIN
     Dosage: 500,MG,TWICE DAILY
     Route: 048
     Dates: start: 20190104, end: 20190105
  50. RED BLOOD CELLS [Concomitant]
     Active Substance: HUMAN RED BLOOD CELL
     Dosage: 500,ML,ONCE
     Route: 042
     Dates: start: 20181226, end: 20181226
  51. TRAMADOL. [Concomitant]
     Active Substance: TRAMADOL
     Dosage: 75,MG,OTHER
     Route: 048
     Dates: start: 20181230, end: 20190105

REACTIONS (1)
  - Organising pneumonia [Recovered/Resolved with Sequelae]

NARRATIVE: CASE EVENT DATE: 20210307
